FAERS Safety Report 25016209 (Version 1)
Quarter: 2025Q1

REPORT INFORMATION
  Report Type: Spontaneous
  Country: IR (occurrence: IR)
  Receive Date: 20250227
  Receipt Date: 20250227
  Transmission Date: 20250409
  Serious: Yes (Congenital Anomaly, Other)
  Sender: LEADING PHARMA
  Company Number: IR-LEADINGPHARMA-IR-2025LEALIT00033

PATIENT
  Age: 6 Day
  Sex: Male

DRUGS (1)
  1. FOLIC ACID [Suspect]
     Active Substance: FOLIC ACID
     Indication: Foetal exposure during pregnancy
     Route: 064

REACTIONS (2)
  - Ectopia cordis [Unknown]
  - Foetal exposure during pregnancy [Unknown]
